FAERS Safety Report 7464702-5 (Version None)
Quarter: 2011Q2

REPORT INFORMATION
  Report Type: 
  Country: None (occurrence: None)
  Receive Date: 20110509
  Receipt Date: 20110331
  Transmission Date: 20111010
  Serious: Yes (Hospitalization, Disabling, Other)
  Sender: FDA-Public Use
  Company Number: US-BAYER-201023193NA

PATIENT
  Age: 42 Year
  Sex: Female
  Weight: 74.83 kg

DRUGS (12)
  1. SYNTHROID [Concomitant]
     Dosage: DAILY DOSE 25 MCG/24HR
  2. CYTOMEL [Concomitant]
     Dosage: 5 MCG/24HR, UNK
  3. YAZ [Suspect]
     Indication: ORAL CONTRACEPTION
     Route: 048
     Dates: start: 20050101
  4. YAZ [Suspect]
     Indication: PREMENSTRUAL SYNDROME
  5. GEODON [Concomitant]
     Dosage: 40 MG, BID
  6. ATIVAN [Concomitant]
     Dosage: 2 MG, UNK
     Route: 048
  7. VALIUM [Concomitant]
     Dosage: 10 MG, HS
     Route: 048
  8. DEPAKOTE [Concomitant]
     Dosage: 250 MG, UNK
  9. NITROFURANTOIN [Concomitant]
     Dosage: 100 MG, BID
  10. ACETAMINOPHEN [Concomitant]
     Dosage: 650 MG, Q4HR
     Route: 048
  11. LEXAPRO [Concomitant]
     Dosage: DAILY DOSE 20 MG
  12. PHENAZOPYRIDINE HCL TAB [Concomitant]
     Dosage: 02 MG, UNK

REACTIONS (4)
  - CAROTID ARTERY DISSECTION [None]
  - CEREBROVASCULAR ACCIDENT [None]
  - HEMIPARESIS [None]
  - APHASIA [None]
